FAERS Safety Report 17925744 (Version 1)
Quarter: 2020Q2

REPORT INFORMATION
  Report Type: Report from Study
  Country: US (occurrence: US)
  Receive Date: 20200622
  Receipt Date: 20200622
  Transmission Date: 20200714
  Serious: Yes (Hospitalization)
  Sender: FDA-Public Use
  Company Number: US-TEVA-2020-US-1790309

PATIENT
  Age: 65 Year
  Sex: Female

DRUGS (10)
  1. SIMVASTATIN. [Suspect]
     Active Substance: SIMVASTATIN
     Route: 048
  2. POTASSIUM-CHLORIDE [Suspect]
     Active Substance: POTASSIUM CHLORIDE
     Route: 048
  3. DONEPEZIL. [Suspect]
     Active Substance: DONEPEZIL
     Route: 048
  4. OMEPRAZOLE. [Suspect]
     Active Substance: OMEPRAZOLE
     Route: 048
  5. FINASTERIDE. [Suspect]
     Active Substance: FINASTERIDE
     Route: 048
  6. VITAMIN B12 [Suspect]
     Active Substance: CYANOCOBALAMIN
     Route: 048
  7. CARVEDILOL. [Suspect]
     Active Substance: CARVEDILOL
     Route: 048
  8. METFORMIN [Suspect]
     Active Substance: METFORMIN HYDROCHLORIDE
     Dosage: INGESTED 14G
     Route: 048
  9. GLIPIZIDE. [Suspect]
     Active Substance: GLIPIZIDE
     Route: 048
  10. TAMSULOSIN [Suspect]
     Active Substance: TAMSULOSIN
     Route: 048

REACTIONS (2)
  - Intentional overdose [Unknown]
  - Lactic acidosis [Unknown]
